FAERS Safety Report 8766346 (Version 3)
Quarter: 2013Q2

REPORT INFORMATION
  Report Type: Report from Study
  Country: JP (occurrence: JP)
  Receive Date: 20120904
  Receipt Date: 20130620
  Transmission Date: 20140414
  Serious: Yes (Hospitalization)
  Sender: FDA-Public Use
  Company Number: JP-009507513-1208JPN011622

PATIENT
  Age: 55 Year
  Sex: Male
  Weight: 68 kg

DRUGS (11)
  1. PEGINTRON [Suspect]
     Indication: CHRONIC HEPATITIS C
     Dosage: 1.5 MICROGRAM PER KILOGRAM, QW
     Route: 058
     Dates: start: 20120517, end: 20121024
  2. REBETOL [Suspect]
     Indication: CHRONIC HEPATITIS C
     Dosage: 800 MG, QD
     Route: 048
     Dates: start: 20120517, end: 20120619
  3. REBETOL [Suspect]
     Dosage: 400 MG, QD
     Route: 048
     Dates: start: 20120620, end: 20120911
  4. REBETOL [Suspect]
     Dosage: 300 MG, BID
     Route: 048
     Dates: start: 20120912, end: 20121009
  5. REBETOL [Suspect]
     Dosage: 400 MG, BID
     Route: 048
     Dates: start: 20121010, end: 20121030
  6. TELAVIC [Suspect]
     Indication: CHRONIC HEPATITIS C
     Dosage: 2250  MG, QD
     Route: 048
     Dates: start: 20120517, end: 20120626
  7. TELAVIC [Suspect]
     Dosage: 1500  MG, QD
     Route: 048
     Dates: start: 20120627, end: 20120807
  8. TEPRENONE [Concomitant]
     Indication: GASTRITIS
     Dosage: 100 MG, QD
     Route: 048
  9. MYSLEE [Concomitant]
     Indication: INSOMNIA
     Dosage: 10 MG, QD, FORMULATION: POR
     Route: 048
  10. ADOFEED [Concomitant]
     Indication: BACK PAIN
     Dosage: UNK, PRN
     Route: 061
  11. LANSOPRAZOLE [Concomitant]
     Indication: PROPHYLAXIS
     Dosage: 15 MG, QD, FORMULATION: POR
     Route: 048
     Dates: start: 20120813

REACTIONS (1)
  - Erythema multiforme [Recovering/Resolving]
